FAERS Safety Report 23696175 (Version 1)
Quarter: 2024Q2

REPORT INFORMATION
  Report Type: Spontaneous
  Country: GB (occurrence: GB)
  Receive Date: 20240402
  Receipt Date: 20240402
  Transmission Date: 20240716
  Serious: Yes (Other)
  Sender: FDA-Public Use
  Company Number: None

PATIENT
  Age: 45 Year
  Sex: Male
  Weight: 71 kg

DRUGS (6)
  1. QUETIAPINE FUMARATE [Suspect]
     Active Substance: QUETIAPINE FUMARATE
     Indication: Product used for unknown indication
     Dosage: 200 MILLIGRAM (TABLET)
     Route: 050
     Dates: start: 20230503
  2. Epilim (Sodium valproate) [Concomitant]
     Indication: Product used for unknown indication
     Dosage: 10 DOSAGE FORM, QD (PER DAY) (MORNING AND EVENING)
     Route: 050
     Dates: start: 20220422
  3. KETOCONAZOLE [Concomitant]
     Active Substance: KETOCONAZOLE
     Indication: Product used for unknown indication
     Dosage: UNK, (HAIR PLUS SCALP UP TO TWICE A WEEK)
     Route: 065
     Dates: start: 20211130
  4. LACOSAMIDE [Concomitant]
     Active Substance: LACOSAMIDE
     Indication: Product used for unknown indication
     Dosage: 10 MILLILITER, QD (PER DAY)
     Route: 065
     Dates: start: 20220422
  5. MIDAZOLAM [Concomitant]
     Active Substance: MIDAZOLAM
     Indication: Seizure
     Dosage: 1 DOSAGE FORM (FULL IN MOUTH (IF CONVULSION LASTS)
     Route: 050
     Dates: start: 20220920
  6. TRAZODONE [Concomitant]
     Active Substance: TRAZODONE HYDROCHLORIDE
     Indication: Product used for unknown indication
     Dosage: 2 DOSAGE FORM, HS (NIGHT) 1 DAY
     Route: 065
     Dates: start: 20201215

REACTIONS (1)
  - Epilepsy [Recovered/Resolved]
